FAERS Safety Report 8347114-1 (Version None)
Quarter: 2012Q2

REPORT INFORMATION
  Report Type: 
  Country: None (occurrence: None)
  Receive Date: 20120509
  Receipt Date: 20120504
  Transmission Date: 20120825
  Serious: Yes (Other)
  Sender: FDA-Public Use
  Company Number: US-PFIZER INC-2011162716

PATIENT
  Sex: Male
  Weight: 73.9 kg

DRUGS (11)
  1. CHANTIX [Suspect]
     Indication: SMOKING CESSATION THERAPY
     Dosage: 0.5 MG, 1X/DAY
     Route: 048
  2. CHANTIX [Suspect]
     Dosage: 1 MG, 2X/DAY
     Route: 048
     Dates: start: 20081101, end: 20090301
  3. CHANTIX [Suspect]
     Dosage: UNK
  4. CHANTIX [Suspect]
     Dosage: 1 MG, 2X/DAY
     Route: 048
     Dates: start: 20120401, end: 20120429
  5. IPRATROPIUM BROMIDE AND ALBUTEROL SULFATE [Concomitant]
     Indication: BRONCHITIS
     Dosage: UNK, TWO TIMES A DAY
  6. CHANTIX [Suspect]
     Dosage: 0.5 MG, UNK
     Route: 048
     Dates: start: 20110101, end: 20110101
  7. LISINOPRIL AND HYDROCHLOROTHIAZIDE [Concomitant]
     Indication: HYPERTENSION
     Dosage: 20/12.5 MG, DAILY
  8. CHANTIX [Suspect]
     Dosage: 1 MG, 2X/DAY
  9. CHANTIX [Suspect]
     Dosage: 0.5 MG, UNK
     Route: 048
     Dates: start: 20120405, end: 20120401
  10. DILAUDID [Concomitant]
     Indication: SPINAL PAIN
     Dosage: 4 MG, 3X/DAY
  11. PERCOCET [Concomitant]
     Indication: PAIN
     Dosage: 5/325 MG; AS NEEDED

REACTIONS (9)
  - PAIN IN EXTREMITY [None]
  - NAUSEA [None]
  - ABNORMAL DREAMS [None]
  - MOOD ALTERED [None]
  - IRRITABILITY [None]
  - MUSCULOSKELETAL STIFFNESS [None]
  - CHEST PAIN [None]
  - AXILLARY PAIN [None]
  - MUSCULOSKELETAL PAIN [None]
